FAERS Safety Report 5905188-9 (Version None)
Quarter: 2008Q4

REPORT INFORMATION
  Report Type: 
  Country: None (occurrence: None)
  Receive Date: 20081001
  Receipt Date: 20080923
  Transmission Date: 20090506
  Serious: Yes (Other)
  Sender: FDA-Public Use
  Company Number: US-JNJCH-2008023970

PATIENT
  Sex: Female

DRUGS (1)
  1. BENADRYL INJECTABLE [Suspect]
     Indication: HYPERSENSITIVITY
     Dosage: TEXT:100 MG DAILY THREE TIMES DAILY
     Route: 030

REACTIONS (1)
  - APPLICATION SITE ULCER [None]
